FAERS Safety Report 5708852-X (Version None)
Quarter: 2008Q2

REPORT INFORMATION
  Report Type: 
  Country: None (occurrence: None)
  Receive Date: 20080416
  Receipt Date: 20080401
  Transmission Date: 20081010
  Serious: No
  Sender: FDA-Public Use
  Company Number: 002#2#2008-00190

PATIENT
  Age: 63 Year
  Sex: Male
  Weight: 119.296 kg

DRUGS (6)
  1. NEUPRO [Suspect]
     Indication: PARKINSON'S DISEASE
     Dosage: 6MG/24H,1 IN 1 D,TRANSDERMAL;  4MG/24H,1 IN 1 D,TRANSDERMAL; 2MG/24H,1 IN 1  D,TRANSDERMAL
     Route: 062
     Dates: start: 20070101, end: 20070101
  2. NEUPRO [Suspect]
     Indication: PARKINSON'S DISEASE
     Dosage: 6MG/24H,1 IN 1 D,TRANSDERMAL;  4MG/24H,1 IN 1 D,TRANSDERMAL; 2MG/24H,1 IN 1  D,TRANSDERMAL
     Route: 062
     Dates: start: 20070501, end: 20070101
  3. NEUPRO [Suspect]
     Indication: PARKINSON'S DISEASE
     Dosage: 6MG/24H,1 IN 1 D,TRANSDERMAL;  4MG/24H,1 IN 1 D,TRANSDERMAL; 2MG/24H,1 IN 1  D,TRANSDERMAL
     Route: 062
     Dates: start: 20070101, end: 20080401
  4. CARBIDOPA AND LEVODOPA [Concomitant]
  5. AZILECT [Concomitant]
  6. UNSPECIFIED MEDICATIONS [Concomitant]

REACTIONS (7)
  - COMPULSIONS [None]
  - DIZZINESS [None]
  - GAMBLING [None]
  - HYPERSEXUALITY [None]
  - PHARMACEUTICAL PRODUCT COMPLAINT [None]
  - VERTIGO [None]
  - VOMITING [None]
